FAERS Safety Report 5397990-X (Version None)
Quarter: 2007Q3

REPORT INFORMATION
  Report Type: 
  Country: None (occurrence: None)
  Receive Date: 20070726
  Receipt Date: 20070716
  Transmission Date: 20080115
  Serious: Yes (Hospitalization)
  Sender: FDA-Public Use
  Company Number: AU-SANOFI-SYNTHELABO-A01200707255

PATIENT
  Sex: Female
  Weight: 70 kg

DRUGS (6)
  1. VALPROATE SODIUM [Concomitant]
     Indication: AFFECTIVE DISORDER
     Dosage: 1 G
     Route: 048
  2. CITALOPRAM HYDROBROMIDE [Concomitant]
     Indication: AFFECTIVE DISORDER
     Dosage: 40 MG
     Route: 048
  3. ZOLPIDEM TARTRATE [Suspect]
     Indication: SLEEP DISORDER
     Dosage: UNK
     Route: 048
     Dates: start: 20070524
  4. ZOLPIDEM TARTRATE [Suspect]
     Indication: ACCIDENTAL OVERDOSE
     Dosage: UNK
     Route: 048
     Dates: start: 20070524
  5. ZOLPIDEM TARTRATE [Suspect]
     Route: 048
     Dates: start: 20070608, end: 20070608
  6. ZOLPIDEM TARTRATE [Suspect]
     Route: 048
     Dates: start: 20070608, end: 20070608

REACTIONS (4)
  - ABNORMAL SLEEP-RELATED EVENT [None]
  - ACCIDENTAL OVERDOSE [None]
  - AMNESIA [None]
  - ROAD TRAFFIC ACCIDENT [None]
